FAERS Safety Report 5031741-3 (Version None)
Quarter: 2006Q2

REPORT INFORMATION
  Report Type: 
  Country: None (occurrence: None)
  Receive Date: 20060616
  Receipt Date: 20060612
  Transmission Date: 20061013
  Serious: Yes (Other)
  Sender: FDA-Public Use
  Company Number: T06-USA-02371-01

PATIENT
  Age: 13 Year
  Sex: Female

DRUGS (4)
  1. ESCITALOPRAM (DOUBLE-BLIND) [Suspect]
     Indication: MAJOR DEPRESSION
     Dosage: 1 TABLET QD PO
     Route: 048
     Dates: end: 20060601
  2. LEXAPRO [Suspect]
     Indication: MAJOR DEPRESSION
     Dosage: 10 MG QD PO
     Route: 048
  3. LEXAPRO [Suspect]
     Indication: MAJOR DEPRESSION
     Dosage: 20 MG QD PO
     Route: 048
     Dates: start: 20060605
  4. PLACEBO (SINGLE-BLIND) [Suspect]
     Indication: MAJOR DEPRESSION
     Dosage: 1 TABLET QD PO
     Route: 048

REACTIONS (6)
  - AGGRESSION [None]
  - ALCOHOL POISONING [None]
  - CRYING [None]
  - INTENTIONAL SELF-INJURY [None]
  - MALAISE [None]
  - SUICIDAL IDEATION [None]
